FAERS Safety Report 25347250 (Version 1)
Quarter: 2025Q2

REPORT INFORMATION
  Report Type: Spontaneous
  Country: GB (occurrence: GB)
  Receive Date: 20250522
  Receipt Date: 20250522
  Transmission Date: 20250717
  Serious: Yes (Other)
  Sender: ANI
  Company Number: GB-ANIPHARMA-2025-UK-000084

PATIENT
  Age: 46 Year
  Sex: Female
  Weight: 98 kg

DRUGS (1)
  1. CANDESARTAN CILEXETIL [Suspect]
     Active Substance: CANDESARTAN CILEXETIL
     Indication: Adverse drug reaction
     Route: 048
     Dates: start: 20250510

REACTIONS (1)
  - Arthralgia [Unknown]
